FAERS Safety Report 25251573 (Version 5)
Quarter: 2025Q2

REPORT INFORMATION
  Report Type: Other
  Country: US (occurrence: US)
  Receive Date: 20250429
  Receipt Date: 20250627
  Transmission Date: 20250716
  Serious: Yes (Hospitalization)
  Sender: TRAVERE THERAPEUTICS
  Company Number: US-TRAVERE-2025TVT00429

PATIENT
  Age: 71 Year
  Sex: Male

DRUGS (9)
  1. FILSPARI [Suspect]
     Active Substance: SPARSENTAN
     Indication: Haematuria
     Route: 048
     Dates: start: 20250228
  2. FILSPARI [Suspect]
     Active Substance: SPARSENTAN
     Indication: Chronic kidney disease
  3. FILSPARI [Suspect]
     Active Substance: SPARSENTAN
     Indication: IgA nephropathy
  4. FILSPARI [Suspect]
     Active Substance: SPARSENTAN
     Indication: Proteinuria
  5. Finafteride [Concomitant]
  6. Triamperene [Concomitant]
  7. METFORMIN [Concomitant]
     Active Substance: METFORMIN HYDROCHLORIDE
  8. ALLOPURINOL [Concomitant]
     Active Substance: ALLOPURINOL
  9. TAMSULOSIN [Concomitant]
     Active Substance: TAMSULOSIN

REACTIONS (12)
  - Dizziness postural [Recovered/Resolved]
  - Wrong technique in product usage process [Unknown]
  - Pruritus [Unknown]
  - Swelling face [Unknown]
  - Insomnia [Unknown]
  - Chest pain [Unknown]
  - Decreased appetite [Unknown]
  - Fatigue [None]
  - Feeling cold [Unknown]
  - Skin hyperpigmentation [None]
  - Asthenia [Unknown]
  - Acne [Unknown]

NARRATIVE: CASE EVENT DATE: 20250228
